FAERS Safety Report 18026633 (Version 1)
Quarter: 2020Q3

REPORT INFORMATION
  Report Type: Spontaneous
  Country: DE (occurrence: DE)
  Receive Date: 20200715
  Receipt Date: 20200715
  Transmission Date: 20201103
  Serious: Yes (Other)
  Sender: FDA-Public Use
  Company Number: NVSC2020DE195859

PATIENT
  Sex: Male
  Weight: 53 kg

DRUGS (2)
  1. ERYTHROCYTES [Concomitant]
     Active Substance: HUMAN RED BLOOD CELL
     Indication: PRODUCT USED FOR UNKNOWN INDICATION
     Dosage: 2 DF (EVEY 2 TO 6 WEEKS)
     Route: 065
  2. EXJADE [Suspect]
     Active Substance: DEFERASIROX
     Indication: THALASSAEMIA
     Dosage: 360 MG, QD (360X 180 MG) 1260 MG QD
     Route: 065
     Dates: start: 201606

REACTIONS (5)
  - Iron overload [Unknown]
  - Drug ineffective [Unknown]
  - Hepatic cirrhosis [Unknown]
  - Serum ferritin increased [Unknown]
  - Brain natriuretic peptide increased [Unknown]

NARRATIVE: CASE EVENT DATE: 2016
